FAERS Safety Report 21698096 (Version 1)
Quarter: 2022Q4

REPORT INFORMATION
  Report Type: Spontaneous
  Country: US (occurrence: US)
  Receive Date: 20221208
  Receipt Date: 20221208
  Transmission Date: 20230113
  Serious: No
  Sender: FDA-Public Use
  Company Number: US-EyePoint Pharmaceuticals, Inc.-US-EYP-22-00090

PATIENT
  Age: 81 Year
  Sex: Male

DRUGS (2)
  1. YUTIQ [Suspect]
     Active Substance: FLUOCINOLONE ACETONIDE
     Indication: Cyclitis
     Dosage: BOTH EYES/OU
     Route: 031
     Dates: start: 20220518, end: 20220518
  2. OZURDEX [Concomitant]
     Active Substance: DEXAMETHASONE
     Indication: Retinal vein occlusion
     Dosage: BOTH EYES
     Route: 065
     Dates: start: 20211206, end: 20211206

REACTIONS (5)
  - Drug delivery system malfunction [Unknown]
  - Syringe issue [Unknown]
  - Off label use [Unknown]
  - Product dose omission issue [Unknown]
  - No adverse event [Unknown]

NARRATIVE: CASE EVENT DATE: 20220518
